FAERS Safety Report 26217338 (Version 1)
Quarter: 2025Q4

REPORT INFORMATION
  Report Type: Spontaneous
  Country: EU (occurrence: EU)
  Receive Date: 20251231
  Receipt Date: 20251231
  Transmission Date: 20260117
  Serious: Yes (Hospitalization)
  Sender: DR REDDYS
  Company Number: None

PATIENT
  Age: 51 Year
  Sex: Female

DRUGS (6)
  1. PREGABALIN [Suspect]
     Active Substance: PREGABALIN
     Indication: Vulvovaginal discomfort
  2. PREGABALIN [Suspect]
     Active Substance: PREGABALIN
  3. MEDROXYPROGESTERONE ACETATE [Suspect]
     Active Substance: MEDROXYPROGESTERONE ACETATE
     Indication: Menstruation irregular
     Dosage: ONE INJECTION OF DEPOT MEDROXYPROGESTERONE ACETATE
  4. TRAZODONE [Suspect]
     Active Substance: TRAZODONE HYDROCHLORIDE
     Indication: Sleep disorder
  5. TRAZODONE [Suspect]
     Active Substance: TRAZODONE HYDROCHLORIDE
  6. ESTRIOL [Suspect]
     Active Substance: ESTRIOL
     Indication: Vulvovaginal discomfort
     Dosage: 1 MG/G, THREE TIMES WEEKLY
     Route: 067

REACTIONS (3)
  - Persistent genital arousal disorder [Recovered/Resolved]
  - Potentiating drug interaction [Recovered/Resolved]
  - Product use in unapproved indication [Unknown]
